FAERS Safety Report 6671300-X (Version None)
Quarter: 2010Q2

REPORT INFORMATION
  Report Type: 
  Country: None (occurrence: None)
  Receive Date: 20100406
  Receipt Date: 20100406
  Transmission Date: 20101027
  Serious: Yes (Hospitalization)
  Sender: FDA-Public Use
  Company Number: None

PATIENT
  Sex: Male
  Weight: 87.7 kg

DRUGS (1)
  1. ZOMETA [Suspect]
     Indication: METASTASES TO BONE
     Dosage: 4MG EVERY 4 WEEKS IV
     Route: 042
     Dates: start: 20100308

REACTIONS (4)
  - BACK PAIN [None]
  - CONSTIPATION [None]
  - DEHYDRATION [None]
  - MUSCULAR WEAKNESS [None]
